FAERS Safety Report 25963862 (Version 1)
Quarter: 2025Q4

REPORT INFORMATION
  Report Type: Spontaneous
  Country: US (occurrence: None)
  Receive Date: 20251027
  Receipt Date: 20251027
  Transmission Date: 20260118
  Serious: Yes (Hospitalization)
  Sender: FDA-CTU
  Company Number: None

PATIENT
  Sex: Female

DRUGS (11)
  1. REVLIMID [Suspect]
     Active Substance: LENALIDOMIDE
     Indication: Plasma cell myeloma
     Dosage: TAKE 1 CAPSULE BY MOUTH ONCE DAILY ON DAYS 1-21 THEN 7 DAYS OFF
     Route: 048
     Dates: start: 20250723
  2. ASPIRIN EC TAB 81 MG [Concomitant]
  3. BUMETANIDE INJ 0.25/ML [Concomitant]
  4. CLINDAMYCIN GEL 1 % [Concomitant]
  5. CLOBETASOL LOT 0.05% [Concomitant]
  6. DARZALEX SOL 100/5ML [Concomitant]
  7. KETOCONAZOLE SHA 2% [Concomitant]
  8. POL VETH GL YC POW 1450 [Concomitant]
  9. POSACONAZOLE TAB 100MG DR [Concomitant]
  10. VITAMIN D CAP 400UNIT [Concomitant]
  11. ZOLEDRONIC ACID [Concomitant]
     Active Substance: ZOLEDRONIC ACID

REACTIONS (2)
  - Infection [None]
  - Therapy interrupted [None]
